FAERS Safety Report 5915939-5 (Version None)
Quarter: 2008Q4

REPORT INFORMATION
  Report Type: 
  Country: None (occurrence: None)
  Receive Date: 20081010
  Receipt Date: 20081006
  Transmission Date: 20090506
  Serious: Yes (Hospitalization)
  Sender: FDA-Public Use
  Company Number: FR-MERCK-0810FRA00020

PATIENT
  Sex: Male

DRUGS (6)
  1. ISENTRESS [Suspect]
     Indication: HIV INFECTION
     Route: 048
     Dates: start: 20080401
  2. LAMIVUDINE [Concomitant]
     Indication: HIV INFECTION
     Route: 048
  3. EFAVIRENZ [Concomitant]
     Indication: HIV INFECTION
     Route: 048
  4. HEPARIN [Concomitant]
     Route: 048
  5. TRANDOLAPRIL [Concomitant]
     Route: 048
  6. NIAOULI OIL AND QUININE BENZOATE AND THIAMINE HYDROCHLORIDE [Concomitant]
     Route: 048

REACTIONS (1)
  - BONE MARROW FAILURE [None]
